FAERS Safety Report 20656861 (Version 3)
Quarter: 2022Q3

REPORT INFORMATION
  Report Type: Spontaneous
  Country: DE (occurrence: DE)
  Receive Date: 20220331
  Receipt Date: 20220721
  Transmission Date: 20221026
  Serious: Yes (Other)
  Sender: FDA-Public Use
  Company Number: DE-DCGMA-21192291

PATIENT
  Age: 51 Year
  Sex: Female

DRUGS (1)
  1. OCRELIZUMAB [Suspect]
     Active Substance: OCRELIZUMAB
     Indication: Multiple sclerosis
     Dosage: MOST RECENT DOSE OF OCRELIZUMAB: /SEP/2020
     Route: 065

REACTIONS (1)
  - Eosinophilic fasciitis [Unknown]

NARRATIVE: CASE EVENT DATE: 20220201
